FAERS Safety Report 13560049 (Version 13)
Quarter: 2020Q1

REPORT INFORMATION
  Report Type: Report from Study
  Country: CA (occurrence: CA)
  Receive Date: 20170518
  Receipt Date: 20200109
  Transmission Date: 20200409
  Serious: Yes (Hospitalization, Other)
  Sender: FDA-Public Use
  Company Number: CA-BRISTOL-MYERS SQUIBB COMPANY-BMS-2017-038718

PATIENT
  Age: 72 Year
  Sex: Female

DRUGS (11)
  1. ABATACEPT [Suspect]
     Active Substance: ABATACEPT
     Indication: RHEUMATOID ARTHRITIS
     Dosage: 750 MG, Q4WK
     Route: 042
     Dates: start: 20090819
  2. PAROXETINE. [Concomitant]
     Active Substance: PAROXETINE
     Indication: PRODUCT USED FOR UNKNOWN INDICATION
     Route: 065
  3. PANTO [PANTHENOL] [Concomitant]
     Indication: PRODUCT USED FOR UNKNOWN INDICATION
     Route: 065
  4. FOLIC ACID. [Concomitant]
     Active Substance: FOLIC ACID
     Indication: PRODUCT USED FOR UNKNOWN INDICATION
     Route: 065
  5. AMLODIPINE [Concomitant]
     Active Substance: AMLODIPINE BESYLATE
     Indication: PRODUCT USED FOR UNKNOWN INDICATION
     Route: 065
  6. FUROSEMIDE. [Concomitant]
     Active Substance: FUROSEMIDE
     Indication: PRODUCT USED FOR UNKNOWN INDICATION
     Route: 065
  7. CALCIUM [Concomitant]
     Active Substance: CALCIUM
     Indication: PRODUCT USED FOR UNKNOWN INDICATION
     Route: 065
  8. METHOTREXATE. [Concomitant]
     Active Substance: METHOTREXATE
     Indication: PRODUCT USED FOR UNKNOWN INDICATION
     Route: 065
  9. ABATACEPT [Suspect]
     Active Substance: ABATACEPT
     Indication: POLYARTHRITIS
     Route: 065
  10. METONIA [Concomitant]
     Active Substance: METOCLOPRAMIDE
     Indication: PRODUCT USED FOR UNKNOWN INDICATION
     Route: 065
  11. INDOMETACIN [Concomitant]
     Active Substance: INDOMETHACIN
     Indication: PRODUCT USED FOR UNKNOWN INDICATION
     Route: 065

REACTIONS (34)
  - Decreased appetite [Unknown]
  - Fungal infection [Unknown]
  - Diarrhoea [Recovering/Resolving]
  - Pneumonia [Not Recovered/Not Resolved]
  - Eructation [Unknown]
  - Asthenia [Unknown]
  - Fatigue [Unknown]
  - Balance disorder [Unknown]
  - Abdominal pain upper [Unknown]
  - Pain [Unknown]
  - Hypoglycaemia [Unknown]
  - Decreased appetite [Unknown]
  - Suicidal ideation [Unknown]
  - Dyspepsia [Unknown]
  - Gastroenteritis viral [Unknown]
  - Pallor [Unknown]
  - Confusional state [Unknown]
  - Depressed mood [Unknown]
  - Sleep apnoea syndrome [Unknown]
  - Product dose omission [Unknown]
  - Knee arthroplasty [Not Recovered/Not Resolved]
  - Post procedural complication [Not Recovered/Not Resolved]
  - Weight decreased [Unknown]
  - Gastric disorder [Unknown]
  - Dizziness [Unknown]
  - Apathy [Unknown]
  - Somnolence [Unknown]
  - Malaise [Unknown]
  - Abscess [Not Recovered/Not Resolved]
  - Anal infection [Not Recovered/Not Resolved]
  - Corneal bleeding [Unknown]
  - Vomiting [Unknown]
  - Nausea [Unknown]
  - Gastrooesophageal reflux disease [Unknown]

NARRATIVE: CASE EVENT DATE: 20170322
